FAERS Safety Report 8894145 (Version 2)
Quarter: 2012Q4

REPORT INFORMATION
  Report Type: 
  Country: ES (occurrence: ES)
  Receive Date: 20121108
  Receipt Date: 20121203
  Transmission Date: 20130627
  Serious: Yes (Hospitalization)
  Sender: FDA-Public Use
  Company Number: ES-PFIZER INC-2012275947

PATIENT
  Age: 77 Year
  Sex: Male

DRUGS (1)
  1. VIAGRA [Suspect]
     Indication: IMPOTENCE
     Dosage: UNK
     Route: 048
     Dates: start: 20120817

REACTIONS (2)
  - Haemoptysis [Recovered/Resolved]
  - Dyspepsia [Recovered/Resolved]
